FAERS Safety Report 11735159 (Version 1)
Quarter: 2015Q4

REPORT INFORMATION
  Report Type: Spontaneous
  Country: GB (occurrence: GB)
  Receive Date: 20151113
  Receipt Date: 20151113
  Transmission Date: 20160304
  Serious: Yes (Other)
  Sender: FDA-Public Use
  Company Number: GB-BAYER-2015-461623

PATIENT
  Sex: Female

DRUGS (1)
  1. MIRENA [Suspect]
     Active Substance: LEVONORGESTREL
     Dosage: 20 MCG/24HR, CONT
     Route: 015
     Dates: start: 201506

REACTIONS (5)
  - Abdominal pain lower [None]
  - Menstruation irregular [None]
  - Device dislocation [None]
  - Urinary tract infection [None]
  - Ovarian cyst [None]

NARRATIVE: CASE EVENT DATE: 2015
